FAERS Safety Report 9999554 (Version 1)
Quarter: 2014Q1

REPORT INFORMATION
  Report Type: Spontaneous
  Country: US (occurrence: US)
  Receive Date: 20140312
  Receipt Date: 20140312
  Transmission Date: 20141002
  Serious: No
  Sender: FDA-Public Use
  Company Number: US-TEVA-394995USA

PATIENT
  Sex: 0

DRUGS (1)
  1. AMOXICILLIN [Suspect]
     Dosage: 400MG/5ML; 3 1/4 TEASPOONS
     Route: 048

REACTIONS (2)
  - Drug dispensing error [Unknown]
  - Drug dose omission [Unknown]
